FAERS Safety Report 9657703 (Version 1)
Quarter: 2013Q4

REPORT INFORMATION
  Report Type: Report from Study
  Country: CH (occurrence: CH)
  Receive Date: 20131030
  Receipt Date: 20131030
  Transmission Date: 20140711
  Serious: Yes (Other)
  Sender: FDA-Public Use
  Company Number: CH-BAXTER-2013BAX041645

PATIENT
  Sex: Male

DRUGS (13)
  1. ENDOXAN 1 G [Suspect]
     Indication: NON-HODGKIN^S LYMPHOMA
     Route: 065
     Dates: start: 20030513
  2. ENDOXAN 1 G [Suspect]
     Route: 065
     Dates: start: 20030902
  3. RITUXIMAB [Suspect]
     Indication: NON-HODGKIN^S LYMPHOMA
     Route: 065
     Dates: start: 20111122
  4. VINCRISTINE [Suspect]
     Indication: NON-HODGKIN^S LYMPHOMA
     Route: 065
     Dates: start: 20030513
  5. VINCRISTINE [Suspect]
     Route: 065
     Dates: start: 20030902
  6. DOXORUBICIN [Suspect]
     Indication: NON-HODGKIN^S LYMPHOMA
     Route: 065
     Dates: start: 20030513
  7. DOXORUBICIN [Suspect]
     Route: 065
     Dates: start: 20030902
  8. PREDNISOLONE [Suspect]
     Indication: NON-HODGKIN^S LYMPHOMA
     Route: 065
     Dates: start: 20030513
  9. PREDNISOLONE [Suspect]
     Route: 065
     Dates: start: 20030902
  10. CARMUSTINE [Suspect]
     Indication: NON-HODGKIN^S LYMPHOMA
     Route: 065
     Dates: start: 20110530
  11. CARMUSTINE [Suspect]
     Route: 065
     Dates: start: 20110813
  12. THIOTEPA [Suspect]
     Indication: NON-HODGKIN^S LYMPHOMA
     Route: 065
     Dates: start: 20110530
  13. THIOTEPA [Suspect]
     Route: 065
     Dates: start: 20110813

REACTIONS (1)
  - Second primary malignancy [Not Recovered/Not Resolved]
